FAERS Safety Report 8181264-8 (Version None)
Quarter: 2012Q1

REPORT INFORMATION
  Report Type: 
  Country: None (occurrence: None)
  Receive Date: 20120126
  Receipt Date: 20110927
  Transmission Date: 20120608
  Serious: Yes (Other)
  Sender: FDA-Public Use
  Company Number: PHHY2011US39646

PATIENT
  Age: 12 Year
  Sex: Female

DRUGS (6)
  1. CLARITIN [Concomitant]
  2. STRATTERA [Concomitant]
  3. ALEGRA (FEXOFENADINE HYDROCHLORIDE) [Concomitant]
  4. VIMPAT [Concomitant]
  5. AFINITOR [Suspect]
     Indication: TUBEROUS SCLEROSIS
     Dosage: 7.5 MG, DAILY, ORAL
     Route: 048
     Dates: start: 20091209, end: 20111011
  6. AFINITOR [Suspect]
     Indication: ASTROCYTOMA, LOW GRADE
     Dosage: 7.5 MG, DAILY, ORAL
     Route: 048
     Dates: start: 20091209, end: 20111011

REACTIONS (5)
  - WEIGHT DECREASED [None]
  - DISEASE PROGRESSION [None]
  - HERPES DERMATITIS [None]
  - MOUTH HAEMORRHAGE [None]
  - ABNORMAL BEHAVIOUR [None]
